FAERS Safety Report 14032707 (Version 8)
Quarter: 2017Q4

REPORT INFORMATION
  Report Type: Report from Study
  Country: JP (occurrence: JP)
  Receive Date: 20171002
  Receipt Date: 20171215
  Transmission Date: 20180321
  Serious: Yes (Hospitalization)
  Sender: FDA-Public Use
  Company Number: JP-PFIZER INC-2017413538

PATIENT
  Age: 76 Year
  Sex: Female
  Weight: 52 kg

DRUGS (8)
  1. SUNITINIB MALATE. [Suspect]
     Active Substance: SUNITINIB MALATE
     Indication: RENAL CELL CARCINOMA
     Dosage: 50 MG, CYCLIC 1X/DAY ((QD) FOR 4 WEEKS AND THEN OFF TREATMENT FOR 2 WEEKS)
     Route: 048
     Dates: start: 20170904, end: 20170914
  2. KARY UNI [Concomitant]
     Active Substance: PIRENOXINE
     Dosage: 0.005 %, UNK
     Route: 047
     Dates: start: 20161107
  3. LIVALO [Concomitant]
     Active Substance: PITAVASTATIN CALCIUM
     Dosage: 1 MG, UNK
     Dates: start: 20071013
  4. NORVASC [Concomitant]
     Active Substance: AMLODIPINE BESYLATE
     Indication: HYPERTENSION
     Dosage: 2.5 MG, UNK
     Dates: start: 19950121, end: 20170917
  5. SUNITINIB MALATE. [Suspect]
     Active Substance: SUNITINIB MALATE
     Dosage: 50 MG, CYCLIC1X/DAY (ALSO REPORTED AS 37.5 MG) ((QD) FOR 4 WEEKS AND THEN OFF TREATMENT FOR 2 WEEKS)
     Route: 048
     Dates: start: 20170930, end: 20171001
  6. OLMETEC [Concomitant]
     Active Substance: OLMESARTAN MEDOXOMIL
     Dosage: 10 MG, UNK
     Dates: start: 20070714, end: 20170917
  7. HYALEIN [Concomitant]
     Active Substance: HYALURONATE SODIUM
     Dosage: 0.1 %, UNK
     Route: 047
     Dates: start: 20170523
  8. SUNITINIB MALATE. [Suspect]
     Active Substance: SUNITINIB MALATE
     Dosage: 50 MG, CYCLIC 1X/DAY (ALSO REPORTED AS 25 MG) ((QD) FOR 4 WEEKS AND THEN OFF TREATMENT FOR 2 WEEKS)
     Route: 048
     Dates: start: 20171017

REACTIONS (2)
  - Platelet count decreased [Recovered/Resolved]
  - Hyponatraemia [Recovered/Resolved]

NARRATIVE: CASE EVENT DATE: 20170913
